FAERS Safety Report 19894513 (Version 1)
Quarter: 2021Q3

REPORT INFORMATION
  Report Type: Spontaneous
  Country: CZ (occurrence: CZ)
  Receive Date: 20210929
  Receipt Date: 20210929
  Transmission Date: 20211014
  Serious: Yes (Other)
  Sender: FDA-Public Use
  Company Number: CZ-B.I. PHARMACEUTICALS,INC./RIDGEFIELD-2021-BI-128420

PATIENT
  Age: 60 Year
  Sex: Female

DRUGS (1)
  1. OFEV [Suspect]
     Active Substance: NINTEDANIB
     Indication: IDIOPATHIC PULMONARY FIBROSIS
     Route: 048
     Dates: start: 201609

REACTIONS (4)
  - Lung transplant [Unknown]
  - Gastrointestinal motility disorder [Recovered/Resolved]
  - Dyspnoea exertional [Unknown]
  - Volvulus [Unknown]

NARRATIVE: CASE EVENT DATE: 201610
